FAERS Safety Report 16725397 (Version 1)
Quarter: 2019Q3

REPORT INFORMATION
  Report Type: Spontaneous
  Country: US (occurrence: US)
  Receive Date: 20190705
  Receipt Date: 20190705
  Transmission Date: 20191005
  Serious: No
  Sender: FDA-Public Use
  Company Number: None

PATIENT
  Age: 49 Year
  Sex: Female

DRUGS (1)
  1. AFINITOR DISPERZ [Suspect]
     Active Substance: EVEROLIMUS
     Route: 048
     Dates: start: 20190502

REACTIONS (3)
  - Radiation oesophagitis [None]
  - Device dislocation [None]
  - Respiratory disorder [None]

NARRATIVE: CASE EVENT DATE: 20190705
